FAERS Safety Report 21846381 (Version 2)
Quarter: 2023Q1

REPORT INFORMATION
  Report Type: Spontaneous
  Country: PT (occurrence: PT)
  Receive Date: 20230111
  Receipt Date: 20230213
  Transmission Date: 20230417
  Serious: Yes (Hospitalization, Other)
  Sender: FDA-Public Use
  Company Number: PT-SUN PHARMACEUTICAL INDUSTRIES LTD-2022R1-372501

PATIENT
  Age: 52 Year
  Sex: Female

DRUGS (1)
  1. LITHIUM [Suspect]
     Active Substance: LITHIUM
     Indication: Neurotoxicity
     Dosage: 800 MILLIGRAM
     Route: 065

REACTIONS (11)
  - Sepsis [Unknown]
  - Large intestine infection [Unknown]
  - Pneumonitis aspiration [Unknown]
  - Delirium [Unknown]
  - Acute kidney injury [Unknown]
  - Nephrogenic diabetes insipidus [Unknown]
  - Hypercalcaemia [Unknown]
  - Blood parathyroid hormone increased [Unknown]
  - Hyperthyroidism [Unknown]
  - Electrolyte imbalance [Unknown]
  - Toxicity to various agents [Unknown]
